FAERS Safety Report 6141994-6 (Version None)
Quarter: 2009Q2

REPORT INFORMATION
  Report Type: 
  Country: None (occurrence: None)
  Receive Date: 20090402
  Receipt Date: 20090327
  Transmission Date: 20091009
  Serious: Yes (Other)
  Sender: FDA-Public Use
  Company Number: PHHO2009IT04163

PATIENT
  Sex: Male
  Weight: 70 kg

DRUGS (3)
  1. ZOLEDRONIC ACID [Suspect]
     Indication: METASTASES TO BONE
     Dosage: 4 MG EVERY 3 MONTHS
     Route: 042
     Dates: start: 20060607, end: 20081215
  2. VITAMIN D [Concomitant]
  3. CALCIUM [Concomitant]

REACTIONS (2)
  - PAIN IN JAW [None]
  - PERIODONTITIS [None]
